APPROVED DRUG PRODUCT: ANTIVERT
Active Ingredient: MECLIZINE HYDROCHLORIDE
Strength: 25MG **Federal Register determination that product was not discontinued or withdrawn for safety or effectiveness reasons**
Dosage Form/Route: TABLET, CHEWABLE;ORAL
Application: N010721 | Product #005
Applicant: CASPER PHARMA LLC
Approved: Approved Prior to Jan 1, 1982 | RLD: Yes | RS: Yes | Type: RX